FAERS Safety Report 19242917 (Version 6)
Quarter: 2021Q4

REPORT INFORMATION
  Report Type: Spontaneous
  Country: FR (occurrence: FR)
  Receive Date: 20210510
  Receipt Date: 20211125
  Transmission Date: 20220303
  Serious: Yes (Other)
  Sender: FDA-Public Use
  Company Number: FR-CELLTRION INC.-2021FR006181

PATIENT

DRUGS (4)
  1. RITUXIMAB [Suspect]
     Active Substance: RITUXIMAB
     Indication: Glomerulonephritis membranous
     Dosage: 1 G, 2 WEEKS APART
     Route: 042
  2. RITUXIMAB [Suspect]
     Active Substance: RITUXIMAB
     Dosage: 1 G, Q2W (2 WEEKS APART)
     Route: 042
  3. RITUXIMAB [Suspect]
     Active Substance: RITUXIMAB
     Dosage: 1 G
     Route: 042
  4. RITUXIMAB [Suspect]
     Active Substance: RITUXIMAB
     Indication: Glomerulonephritis membranous
     Dosage: 1 G, Q2W (2 WEEKS APART)
     Route: 042

REACTIONS (8)
  - Nephrotic syndrome [Recovering/Resolving]
  - Drug specific antibody present [Unknown]
  - Drug ineffective for unapproved indication [Unknown]
  - Therapy change [Unknown]
  - Therapy non-responder [Unknown]
  - Off label use [Unknown]
  - Remission not achieved [Unknown]
  - Drug resistance [Unknown]
